FAERS Safety Report 5239136-4 (Version None)
Quarter: 2007Q1

REPORT INFORMATION
  Report Type: 
  Country: None (occurrence: None)
  Receive Date: 20061208
  Receipt Date: 20050516
  Transmission Date: 20070707
  Serious: Yes (Other)
  Sender: FDA-Public Use
  Company Number: 2005UW07565

PATIENT
  Age: 63 Year
  Sex: Male
  Weight: 179 kg

DRUGS (5)
  1. CRESTOR [Suspect]
     Indication: BLOOD TRIGLYCERIDES INCREASED
     Dosage: 10 MG PO
     Route: 048
     Dates: start: 20050401
  2. TRICOR [Suspect]
  3. ATENOLOL [Concomitant]
  4. LEXAPRO [Concomitant]
  5. MOBIC [Concomitant]

REACTIONS (1)
  - SLEEP APNOEA SYNDROME [None]
